FAERS Safety Report 9607365 (Version 2)
Quarter: 2013Q4

REPORT INFORMATION
  Report Type: Report from Study
  Country: US (occurrence: US)
  Receive Date: 20131009
  Receipt Date: 20131101
  Transmission Date: 20140711
  Serious: Yes (Hospitalization)
  Sender: FDA-Public Use
  Company Number: US-CELGENEUS-163-POMAL-13100159

PATIENT
  Age: 74 Year
  Sex: Female

DRUGS (3)
  1. POMALYST [Suspect]
     Indication: PLASMA CELL MYELOMA
     Dosage: 4 MILLIGRAM
     Route: 048
     Dates: start: 20130311, end: 20130924
  2. LEVOTHROID [Concomitant]
     Indication: HYPOTHYROIDISM
     Route: 065
  3. APRESOLINE [Concomitant]
     Indication: HYPERTENSION
     Route: 065

REACTIONS (1)
  - Oral herpes [Recovering/Resolving]
